FAERS Safety Report 7108443-2 (Version None)
Quarter: 2010Q4

REPORT INFORMATION
  Report Type: 
  Country: None (occurrence: None)
  Receive Date: 20101117
  Receipt Date: 20101115
  Transmission Date: 20110411
  Serious: Yes (Hospitalization)
  Sender: FDA-Public Use
  Company Number: B0681265A

PATIENT
  Age: 68 Year
  Sex: Male

DRUGS (1)
  1. AUGMENTIN '125' [Suspect]
     Indication: SINUSITIS
     Dosage: 1G TWICE PER DAY
     Route: 048

REACTIONS (5)
  - FATIGUE [None]
  - HEPATITIS [None]
  - JAUNDICE [None]
  - WEIGHT DECREASED [None]
  - YELLOW SKIN [None]
